FAERS Safety Report 17533820 (Version 1)
Quarter: 2020Q1

REPORT INFORMATION
  Report Type: Spontaneous
  Country: US (occurrence: US)
  Receive Date: 20200312
  Receipt Date: 20200312
  Transmission Date: 20200409
  Serious: Yes (Death)
  Sender: FDA-Public Use
  Company Number: None

PATIENT
  Age: 42 Year
  Sex: Male
  Weight: 81 kg

DRUGS (3)
  1. MONTELUKAST [Suspect]
     Active Substance: MONTELUKAST SODIUM
     Indication: ASTHMA
     Dosage: ?          QUANTITY:1 TABLET(S);?
     Route: 048
     Dates: start: 20191222, end: 20200201
  2. MONTELUKAST [Suspect]
     Active Substance: MONTELUKAST SODIUM
     Indication: MULTIPLE ALLERGIES
     Dosage: ?          QUANTITY:1 TABLET(S);?
     Route: 048
     Dates: start: 20191222, end: 20200201
  3. FISH OIL [Concomitant]
     Active Substance: FISH OIL

REACTIONS (25)
  - Anxiety [None]
  - Speech disorder [None]
  - Peripheral coldness [None]
  - Aggression [None]
  - Disturbance in attention [None]
  - Moaning [None]
  - Disorientation [None]
  - Incoherent [None]
  - Paranoia [None]
  - Fall [None]
  - Depressed mood [None]
  - Intentional self-injury [None]
  - Paraesthesia [None]
  - Abnormal behaviour [None]
  - Feeling abnormal [None]
  - Mood swings [None]
  - Decreased interest [None]
  - Completed suicide [None]
  - Ocular hyperaemia [None]
  - Hypoaesthesia [None]
  - Amnesia [None]
  - Nausea [None]
  - Dyskinesia [None]
  - Feeling of despair [None]
  - Suicidal ideation [None]
